FAERS Safety Report 12708455 (Version 2)
Quarter: 2016Q3

REPORT INFORMATION
  Report Type: Spontaneous
  Country: JP (occurrence: JP)
  Receive Date: 20160901
  Receipt Date: 20160928
  Transmission Date: 20161109
  Serious: Yes (Hospitalization)
  Sender: FDA-Public Use
  Company Number: JP-GLAXOSMITHKLINE-JP2016GSK126208

PATIENT
  Age: 83 Year
  Sex: Male

DRUGS (25)
  1. MUCOSOLVAN [Concomitant]
     Active Substance: AMBROXOL HYDROCHLORIDE
     Indication: PRODUCT USED FOR UNKNOWN INDICATION
     Dosage: UNK
     Dates: start: 20160508, end: 20160508
  2. MAINTATE [Concomitant]
     Active Substance: BISOPROLOL FUMARATE
     Indication: PRODUCT USED FOR UNKNOWN INDICATION
     Dosage: UNK
     Dates: start: 20160311
  3. MAGMITT [Concomitant]
     Active Substance: MAGNESIUM OXIDE
     Indication: PRODUCT USED FOR UNKNOWN INDICATION
  4. BROTIZOLAM [Concomitant]
     Active Substance: BROTIZOLAM
  5. ALFACALCIDOL [Concomitant]
     Active Substance: ALFACALCIDOL
  6. TRYPTANOL [Concomitant]
     Active Substance: AMITRIPTYLINE
  7. FLAVERIC [Concomitant]
     Active Substance: BENPROPERINE PHOSPHATE
     Indication: PRODUCT USED FOR UNKNOWN INDICATION
     Dosage: UNK
     Dates: start: 20160508, end: 20160526
  8. LIPITOR [Concomitant]
     Active Substance: ATORVASTATIN CALCIUM
  9. MEXITIL [Concomitant]
     Active Substance: MEXILETINE HYDROCHLORIDE
  10. NU-LOTAN [Concomitant]
     Active Substance: LOSARTAN POTASSIUM
  11. NEXIUM [Concomitant]
     Active Substance: ESOMEPRAZOLE MAGNESIUM
  12. OMEGA-3-ACID ETHYL ESTERS. [Suspect]
     Active Substance: OMEGA-3-ACID ETHYL ESTERS
     Indication: HYPERLIPIDAEMIA
     Dosage: 2 G, UNK
     Route: 048
     Dates: start: 20160226
  13. BROCIN-CODEINE [Concomitant]
     Dosage: UNK
     Dates: start: 20160824
  14. PARIET [Concomitant]
     Active Substance: RABEPRAZOLE SODIUM
     Indication: PRODUCT USED FOR UNKNOWN INDICATION
  15. MEDICON (NOS) [Concomitant]
     Indication: PRODUCT USED FOR UNKNOWN INDICATION
  16. LEVOFLOXACIN. [Concomitant]
     Active Substance: LEVOFLOXACIN
     Indication: PRODUCT USED FOR UNKNOWN INDICATION
     Dosage: UNK
     Dates: start: 20160804, end: 20160812
  17. MUCODYNE [Concomitant]
     Active Substance: CARBOCYSTEINE
     Indication: PRODUCT USED FOR UNKNOWN INDICATION
  18. MOHRUS [Concomitant]
     Active Substance: KETOPROFEN
  19. ESFLURBIPROFEN [Concomitant]
     Indication: PRODUCT USED FOR UNKNOWN INDICATION
     Dosage: UNK
     Dates: start: 20160617
  20. PURSENNID [Concomitant]
     Active Substance: SENNOSIDES A AND B
     Indication: PRODUCT USED FOR UNKNOWN INDICATION
  21. PRANLUKAST [Concomitant]
     Active Substance: PRANLUKAST
  22. HARNAL [Concomitant]
     Active Substance: TAMSULOSIN HYDROCHLORIDE
  23. SPIRIVA [Concomitant]
     Active Substance: TIOTROPIUM BROMIDE MONOHYDRATE
  24. BAYASPIRIN [Concomitant]
     Active Substance: ASPIRIN
  25. HIRUDOID [Concomitant]
     Active Substance: GLYCOSAMINOGLYCANS

REACTIONS (2)
  - Fall [Unknown]
  - Tibia fracture [Recovered/Resolved]

NARRATIVE: CASE EVENT DATE: 20160728
